FAERS Safety Report 23726345 (Version 1)
Quarter: 2024Q2

REPORT INFORMATION
  Report Type: Spontaneous
  Country: US (occurrence: US)
  Receive Date: 20240410
  Receipt Date: 20240410
  Transmission Date: 20240716
  Serious: Yes (Hospitalization, Other)
  Sender: FDA-Public Use
  Company Number: US-AMGEN-USASP2024068983

PATIENT
  Age: 44 Year
  Sex: Female

DRUGS (2)
  1. REPATHA [Suspect]
     Active Substance: EVOLOCUMAB
     Indication: Type IIa hyperlipidaemia
     Dosage: 420 MILLIGRAM (TWICE A MONTH )
     Route: 058
     Dates: start: 2020
  2. PLAVIX [Concomitant]
     Active Substance: CLOPIDOGREL BISULFATE

REACTIONS (10)
  - Road traffic accident [Unknown]
  - Intervertebral disc protrusion [Unknown]
  - Knee operation [Recovered/Resolved]
  - Cerebrovascular accident [Unknown]
  - Joint injury [Recovered/Resolved]
  - Musculoskeletal stiffness [Recovered/Resolved]
  - Drug dose omission by device [Unknown]
  - Device difficult to use [Unknown]
  - Tremor [Unknown]
  - Adverse event [Unknown]

NARRATIVE: CASE EVENT DATE: 20220823
